FAERS Safety Report 5651872-4 (Version None)
Quarter: 2008Q1

REPORT INFORMATION
  Report Type: 
  Country: None (occurrence: None)
  Receive Date: 20080305
  Receipt Date: 20080222
  Transmission Date: 20080703
  Serious: Yes (Other)
  Sender: FDA-Public Use
  Company Number: US-PFIZER INC-2008018493

PATIENT
  Age: 54 Year
  Sex: Female

DRUGS (3)
  1. ZOLOFT [Suspect]
     Indication: SLEEP DISORDER
  2. ZOLOFT [Suspect]
     Indication: PANIC ATTACK
  3. SYNTHROID [Concomitant]
     Route: 048

REACTIONS (4)
  - AGGRESSION [None]
  - ALCOHOL USE [None]
  - IMPULSIVE BEHAVIOUR [None]
  - PATHOLOGICAL GAMBLING [None]
